FAERS Safety Report 7436192-X (Version None)
Quarter: 2011Q2

REPORT INFORMATION
  Report Type: 
  Country: None (occurrence: None)
  Receive Date: 20110425
  Receipt Date: 20110420
  Transmission Date: 20111010
  Serious: Yes (Death, Hospitalization)
  Sender: FDA-Public Use
  Company Number: JP-MERCK-1103USA01992

PATIENT
  Age: 78 Year
  Sex: Male

DRUGS (7)
  1. DIART [Concomitant]
     Route: 048
  2. PLAVIX [Concomitant]
     Route: 048
  3. ANCARON [Suspect]
     Route: 048
  4. CILNIDIPINE [Concomitant]
     Route: 048
  5. JANUVIA [Suspect]
     Indication: DIABETES MELLITUS
     Route: 048
     Dates: start: 20110101
  6. CRESTOR [Concomitant]
     Route: 048
  7. CARVEDILOL [Concomitant]
     Route: 048

REACTIONS (1)
  - INTERSTITIAL LUNG DISEASE [None]
